FAERS Safety Report 5279649-2 (Version None)
Quarter: 2007Q1

REPORT INFORMATION
  Report Type: 
  Country: None (occurrence: None)
  Receive Date: 20070323
  Receipt Date: 20070126
  Transmission Date: 20070707
  Serious: Yes (Life-Threatening, Hospitalization)
  Sender: FDA-Public Use
  Company Number: PRI050412007007

PATIENT
  Sex: Male

DRUGS (7)
  1. CETUXIMAB / 10MG [Suspect]
     Indication: COLORECTAL CANCER METASTATIC
     Dosage: 840MG IV
     Route: 042
     Dates: start: 20070124, end: 20070124
  2. BEVACIZUMAB [Concomitant]
  3. FLUOROURACIL [Concomitant]
  4. LEUCOVORIN CALCIUM [Concomitant]
  5. ALOXI [Concomitant]
  6. DECADRON [Concomitant]
  7. BENADRYL [Concomitant]

REACTIONS (12)
  - CONVULSION [None]
  - EYE SWELLING [None]
  - GENERALISED OEDEMA [None]
  - HYPOTENSION [None]
  - HYPOXIA [None]
  - JOINT LOCK [None]
  - MENTAL STATUS CHANGES [None]
  - PARAESTHESIA [None]
  - SPEECH DISORDER [None]
  - SWOLLEN TONGUE [None]
  - TONIC CLONIC MOVEMENTS [None]
  - TRISMUS [None]
